FAERS Safety Report 6842547-4 (Version None)
Quarter: 2010Q3

REPORT INFORMATION
  Report Type: 
  Country: None (occurrence: None)
  Receive Date: 20100714
  Receipt Date: 20070730
  Transmission Date: 20110219
  Serious: No
  Sender: FDA-Public Use
  Company Number: US-PFIZER INC-2007064791

PATIENT
  Sex: Female
  Weight: 63.5 kg

DRUGS (24)
  1. CHANTIX [Suspect]
     Indication: SMOKING CESSATION THERAPY
     Dates: start: 20070728
  2. WARFARIN SODIUM [Concomitant]
  3. ALBUTEROL [Concomitant]
  4. NORVASC [Concomitant]
  5. DILANTIN [Concomitant]
  6. FOSAMAX [Concomitant]
  7. FUROSEMIDE [Concomitant]
  8. PAROXETINE [Concomitant]
  9. POTASSIUM CHLORIDE [Concomitant]
  10. PHENOBARBITAL [Concomitant]
  11. PREDNISONE TAB [Concomitant]
  12. PREVACID [Concomitant]
  13. SPIRONOLACTONE [Concomitant]
  14. THEOPHYLLINE [Concomitant]
  15. DOCUSATE SODIUM [Concomitant]
  16. DURAGESIC-100 [Concomitant]
     Indication: PAIN
  17. NITROGLYCERIN [Concomitant]
     Dosage: 0.2 MG 12 HOURS A DAY
  18. VICODIN [Concomitant]
  19. PHENERGAN EXPECTORANT W/ CODEINE [Concomitant]
     Indication: COUGH
  20. ADVAIR DISKUS 100/50 [Concomitant]
  21. ALBUTEROL [Concomitant]
  22. NAPROXEN [Concomitant]
  23. ALLOPURINOL [Concomitant]
  24. MECLIZINE [Concomitant]

REACTIONS (2)
  - CHILLS [None]
  - FEELING COLD [None]
